FAERS Safety Report 7649725-5 (Version None)
Quarter: 2011Q3

REPORT INFORMATION
  Report Type: 
  Country: None (occurrence: None)
  Receive Date: 20110727
  Receipt Date: 20110713
  Transmission Date: 20111222
  Serious: Yes (Hospitalization, Other)
  Sender: FDA-Public Use
  Company Number: JPI-P-015511

PATIENT
  Age: 42 Year
  Sex: Female
  Weight: 77.5651 kg

DRUGS (13)
  1. PAROXETINE HCL [Concomitant]
  2. XYREM [Suspect]
     Indication: NARCOLEPSY
     Dosage: 4 GM FIRST DOSE/4.5 GM SECOND DOSE, ORAL 8 GM (4 GM, 2 IN 1 D), ORAL
     Route: 048
     Dates: start: 20080201
  3. XYREM [Suspect]
     Indication: SOMNOLENCE
     Dosage: 4 GM FIRST DOSE/4.5 GM SECOND DOSE, ORAL 8 GM (4 GM, 2 IN 1 D), ORAL
     Route: 048
     Dates: start: 20080201
  4. VITAMIN B-12 [Concomitant]
  5. PRAMIPEXOLE DIHYDROCHLORIDE [Concomitant]
  6. INTRAVENOUS FLUIDS [Suspect]
     Indication: PROPHYLAXIS AGAINST DEHYDRATION
     Dosage: INTRAVENOUS
     Route: 042
     Dates: start: 20101201
  7. MODAFINIL [Concomitant]
  8. TOPIRAMATE [Suspect]
     Indication: CONVULSION
     Dates: end: 20101101
  9. TRIMETHOBENZAMIDE HYDROCHLORIDE [Concomitant]
  10. UNSPECIFIED ALLERGY NASAL SPRAYS [Concomitant]
  11. LEVOTHYROXINE SODIUM [Concomitant]
  12. DIAZEPAM [Concomitant]
  13. MULTI-VITAMINS [Concomitant]

REACTIONS (7)
  - HYPOTENSION [None]
  - WEIGHT DECREASED [None]
  - HEART RATE INCREASED [None]
  - MALABSORPTION [None]
  - CONVULSION [None]
  - DEHYDRATION [None]
  - MYOCARDIAL INFARCTION [None]
